FAERS Safety Report 4987363-3 (Version None)
Quarter: 2006Q2

REPORT INFORMATION
  Report Type: 
  Country: None (occurrence: None)
  Receive Date: 20060424
  Receipt Date: 20060417
  Transmission Date: 20061013
  Serious: Yes (Hospitalization, Other)
  Sender: FDA-Public Use
  Company Number: 2006AL000994

PATIENT
  Age: 62 Year
  Sex: Male

DRUGS (16)
  1. DIGOXIN TABLETS, USP 0.25 MG (AMIDE) [Suspect]
     Indication: CORONARY ARTERY SURGERY
     Dosage: 250 UG;PRN;PO
     Route: 048
     Dates: start: 20051211, end: 20051222
  2. CEP-10953 [Suspect]
     Indication: HYPERSOMNIA
     Dosage: 250 MG;QD;PO
     Route: 048
     Dates: start: 20041022
  3. AMIODARONE HCL [Concomitant]
  4. FUROSEMIDE [Concomitant]
  5. MULTIVITAMIN [Concomitant]
  6. TYLENOL SINUS [Concomitant]
  7. TYLENOL [Concomitant]
  8. ASPIRIN [Concomitant]
  9. PLAVIX [Concomitant]
  10. LIPITOR [Concomitant]
  11. COREG [Concomitant]
  12. NITROGLYCERIN [Concomitant]
  13. POTASSIUM CHLORIDE [Concomitant]
  14. LEXAPRO [Concomitant]
  15. OXYCODONE [Concomitant]
  16. GLUCOVANCE [Concomitant]

REACTIONS (3)
  - CARDIOACTIVE DRUG LEVEL INCREASED [None]
  - CORONARY ARTERY SURGERY [None]
  - SINUS BRADYCARDIA [None]
